FAERS Safety Report 11373988 (Version 1)
Quarter: 2015Q3

REPORT INFORMATION
  Report Type: Spontaneous
  Country: US (occurrence: None)
  Receive Date: 20150804
  Receipt Date: 20150804
  Transmission Date: 20151125
  Serious: Yes (Hospitalization)
  Sender: FDA-Public Use
  Company Number: US-SEPTODONT-201402227

PATIENT
  Age: 42 Year
  Sex: Male
  Weight: 84.8 kg

DRUGS (1)
  1. ARTICAINE HYDROCHLORIDE WITH EPINEPHRINE [Suspect]
     Active Substance: ARTICAINE\EPINEPHRINE
     Indication: LOCAL ANAESTHESIA
     Route: 004
     Dates: start: 20130711, end: 20130711

REACTIONS (9)
  - Paraesthesia [None]
  - Dizziness [None]
  - Throat tightness [None]
  - Fatigue [None]
  - Dysgeusia [None]
  - Palpitations [None]
  - Dizziness postural [None]
  - Panic attack [None]
  - Dyspnoea [None]

NARRATIVE: CASE EVENT DATE: 20130711
